FAERS Safety Report 22105210 (Version 2)
Quarter: 2023Q1

REPORT INFORMATION
  Report Type: Other
  Country: DE (occurrence: DE)
  Receive Date: 20230317
  Receipt Date: 20230330
  Transmission Date: 20230418
  Serious: Yes (Other)
  Sender: FDA-Public Use
  Company Number: DE-CELLTRION INC.-2023DE005280

PATIENT

DRUGS (18)
  1. RITUXIMAB [Suspect]
     Active Substance: RITUXIMAB
     Indication: Diffuse large B-cell lymphoma
     Dosage: UNK
     Dates: start: 20210226, end: 20211015
  2. RITUXIMAB [Suspect]
     Active Substance: RITUXIMAB
     Dosage: UNK
     Dates: start: 20221103, end: 20230122
  3. RITUXIMAB [Suspect]
     Active Substance: RITUXIMAB
     Dosage: UNK
     Dates: start: 20211117, end: 20211230
  4. OXALIPLATIN [Suspect]
     Active Substance: OXALIPLATIN
     Indication: Diffuse large B-cell lymphoma
     Dosage: FOURTH LINE WITH RITUXIMAB AND POLATUZUMAB 03/NOV/2022 TO 22/JAN/2023 SECOND LINE WITH DHAOX 17/NOV/
     Dates: start: 20211117, end: 20211230
  5. ETOPOSIDE [Suspect]
     Active Substance: ETOPOSIDE
     Indication: Diffuse large B-cell lymphoma
     Dosage: WITH RITUXIMAB IFOSFAMIDE AND 4 TIMES SECOND LINE WITH DHAOX 17/NOV/2021 TO 30/DEC/2021 FOURTH LINE
     Dates: start: 20210226, end: 20211015
  6. BLEOMYCIN [Suspect]
     Active Substance: BLEOMYCIN SULFATE
     Indication: Diffuse large B-cell lymphoma
     Dosage: FOURTH LINE WITH RITUXIMAB AND POLATUZUMABSECOND LINE WITH RITUXIMABFIRST LINE WITH RITXUXIMAB
     Dates: start: 20210226, end: 20211015
  7. ADRIAMYCIN [Suspect]
     Active Substance: DOXORUBICIN HYDROCHLORIDE
     Indication: Diffuse large B-cell lymphoma
     Dosage: UNK
     Dates: start: 20210226, end: 20211015
  8. POLATUZUMAB VEDOTIN [Suspect]
     Active Substance: POLATUZUMAB VEDOTIN
     Indication: Diffuse large B-cell lymphoma
     Dosage: FOURTH LINE WITH RITUXIMAB AND BENDAMUSTINE
     Dates: start: 20221103, end: 20230122
  9. VINDESINE [Suspect]
     Active Substance: VINDESINE
     Indication: Diffuse large B-cell lymphoma
     Dosage: SECOND LINE WITH RITUXIMAB FIRST LINE WITH RITXUXIMAB, WITH RITUXIMAB 4 TIMES
     Dates: start: 20210226, end: 20211015
  10. IFOSFAMIDE [Suspect]
     Active Substance: IFOSFAMIDE
     Indication: Diffuse large B-cell lymphoma
     Dosage: WITH RITUXIMAB ETOPOSIDE AND 4 TIMES SECOND LINE WITH DHAOX 17/NOV/2021 TO 30/DEC/2021 FOURTH LINE W
     Dates: start: 20210226, end: 20211015
  11. CYCLOPHOSPHAMIDE [Suspect]
     Active Substance: CYCLOPHOSPHAMIDE
     Indication: Diffuse large B-cell lymphoma
     Dosage: FIRST LINE WITH RITXUXIMAB 4 TIMES SECOND LINE WITH DHAOX 17/NOV/2021 TO 30/DEC/2021 FOURTH LINE WIT
     Dates: start: 20210226, end: 20211015
  12. METHOTREXATE [Suspect]
     Active Substance: METHOTREXATE
     Indication: Diffuse large B-cell lymphoma
     Dosage: WITH RITUXIMAB 2 TIMES SECOND LINE WITH DHAOX 17/NOV/2021 TO 30/DEC/2021 FOURTH LINE WITH POLATUZUMA
     Dates: start: 20210226, end: 20211015
  13. DOXORUBICIN [Suspect]
     Active Substance: DOXORUBICIN
     Indication: Diffuse large B-cell lymphoma
     Dosage: FIRST LINE WITH RITXUXIMAB 4 TIMES SECOND LINE WITH DHAOX 17/NOV/2021 TO 30/DEC/2021 FOURTH LINE WIT
     Dates: start: 20210226, end: 20211015
  14. BENDAMUSTINE [Suspect]
     Active Substance: BENDAMUSTINE
     Indication: Diffuse large B-cell lymphoma
     Dosage: FOURTH LINE WITH RITUXIMAB AND POLATUZUMAB SECOND LINE WITH RITUXIMAB
     Dates: start: 20221103, end: 20230122
  15. PREDNISONE [Suspect]
     Active Substance: PREDNISONE
     Indication: Diffuse large B-cell lymphoma
     Dosage: FOURTH LINE WITH RITUXIMAB AND POLATUZUMAB 03/NOV/2022 TO 22/JAN/2023 SECOND LINE WITH RITUXIMAB, SE
     Dates: start: 20210226, end: 20211015
  16. CYTARABINE [Suspect]
     Active Substance: CYTARABINE
     Indication: Diffuse large B-cell lymphoma
     Dosage: FOURTH LINE WITH RITUXIMAB AND POLATUZUMAB SECOND LINE WITH RITUXIMAB
     Dates: start: 20211117, end: 20211230
  17. DEXAMETHASONE [Suspect]
     Active Substance: DEXAMETHASONE
     Indication: Diffuse large B-cell lymphoma
     Dosage: FOURTH LINE WITH RITUXIMAB AND POLATUZUMAB SECOND LINE WITH RITUXIMAB
     Dates: start: 20211117, end: 20211230
  18. VINCRISTINE [Suspect]
     Active Substance: VINCRISTINE
     Indication: Diffuse large B-cell lymphoma
     Dosage: UNK
     Dates: start: 20210226, end: 20211015

REACTIONS (2)
  - Lymphoma [Not Recovered/Not Resolved]
  - Disease progression [Not Recovered/Not Resolved]
